FAERS Safety Report 20246995 (Version 1)
Quarter: 2021Q4

REPORT INFORMATION
  Report Type: Spontaneous
  Country: SE (occurrence: SE)
  Receive Date: 20211229
  Receipt Date: 20211229
  Transmission Date: 20220303
  Serious: Yes (Disabling)
  Sender: FDA-Public Use
  Company Number: None

PATIENT
  Age: 66 Year
  Sex: Male
  Weight: 74 kg

DRUGS (1)
  1. FURADANTIN [Suspect]
     Active Substance: NITROFURANTOIN
     Indication: Urinary tract infection
     Dosage: 50 MILLIGRAM, QD
     Route: 048
     Dates: start: 20190913, end: 20210715

REACTIONS (4)
  - Cough [Recovering/Resolving]
  - Liver disorder [Recovering/Resolving]
  - Weight decreased [Recovering/Resolving]
  - Pulmonary function test decreased [Recovering/Resolving]

NARRATIVE: CASE EVENT DATE: 20200910
